FAERS Safety Report 21017486 (Version 1)
Quarter: 2022Q2

REPORT INFORMATION
  Report Type: Report from Study
  Country: CN (occurrence: CN)
  Receive Date: 20220628
  Receipt Date: 20220628
  Transmission Date: 20220721
  Serious: Yes (Death, Other)
  Sender: FDA-Public Use
  Company Number: CN-PFIZER INC-202200897318

PATIENT

DRUGS (1)
  1. CYTARABINE [Suspect]
     Active Substance: CYTARABINE
     Indication: Acute myeloid leukaemia
     Dosage: 2 G/M2, DAILY, DAYS 1 TO 5

REACTIONS (3)
  - Myelosuppression [Fatal]
  - Intestinal obstruction [Fatal]
  - Sepsis [Fatal]
